FAERS Safety Report 9818539 (Version 2)
Quarter: 2014Q1

REPORT INFORMATION
  Report Type: Report from Study
  Country: CA (occurrence: CA)
  Receive Date: 20140115
  Receipt Date: 20140221
  Transmission Date: 20141002
  Serious: Yes (Other)
  Sender: FDA-Public Use
  Company Number: CA-JNJFOC-20140103691

PATIENT
  Age: 27 Year
  Sex: Female

DRUGS (2)
  1. SIMPONI [Suspect]
     Indication: CROHN^S DISEASE
     Route: 058
  2. SIMPONI [Suspect]
     Indication: CROHN^S DISEASE
     Route: 058

REACTIONS (3)
  - Intestinal resection [Unknown]
  - Wound infection [Not Recovered/Not Resolved]
  - Off label use [Unknown]
